FAERS Safety Report 16350328 (Version 1)
Quarter: 2019Q2

REPORT INFORMATION
  Report Type: Spontaneous
  Country: FR (occurrence: FR)
  Receive Date: 20190524
  Receipt Date: 20190524
  Transmission Date: 20190711
  Serious: Yes (Hospitalization)
  Sender: FDA-Public Use
  Company Number: FR-TEVA-2019-FR-1052409

PATIENT
  Age: 64 Year
  Sex: Male
  Weight: 72.3 kg

DRUGS (10)
  1. SPECIAFOLDINE [Concomitant]
     Active Substance: FOLIC ACID
  2. AMIKACINE [AMIKACIN] [Suspect]
     Active Substance: AMIKACIN
     Indication: SERRATIA SEPSIS
     Dosage: 250 MILLIGRAM DAILY;
     Route: 042
     Dates: start: 20190222, end: 20190304
  3. CISPLATINE ACCORD [Suspect]
     Active Substance: CISPLATIN
     Indication: PROSTATE CANCER
     Route: 042
     Dates: start: 20190211, end: 20190215
  4. BLEOMYCINE BELLON 15 MG, POUDRE POUR SOLUTION INJECTABLE [Interacting]
     Active Substance: BLEOMYCIN SULFATE
     Indication: PROSTATE CANCER
     Dates: start: 20190211, end: 20190225
  5. ZARZIO [Interacting]
     Active Substance: FILGRASTIM
     Indication: NEUTROPENIA
     Dosage: 1 DOSAGE FORMS DAILY;
     Route: 058
     Dates: start: 20190223, end: 20190226
  6. CIPROFLOXACINE [Suspect]
     Active Substance: CIPROFLOXACIN
     Indication: SERRATIA SEPSIS
     Dosage: 1000 MILLIGRAM DAILY;
     Route: 048
     Dates: start: 20190222, end: 20190304
  7. BROMAZEPAM [Concomitant]
     Active Substance: BROMAZEPAM
  8. GAVISCON [Concomitant]
     Active Substance: ALUMINUM HYDROXIDE\MAGNESIUM CARBONATE
  9. ETOPOSIDE MYLAN [Suspect]
     Active Substance: ETOPOSIDE
     Indication: PROSTATE CANCER
     Route: 042
     Dates: start: 20190211, end: 20190215
  10. ZYMAD [Concomitant]
     Active Substance: CHOLECALCIFEROL

REACTIONS (2)
  - Lung disorder [Not Recovered/Not Resolved]
  - Drug interaction [Unknown]

NARRATIVE: CASE EVENT DATE: 20190304
